FAERS Safety Report 20522805 (Version 1)
Quarter: 2022Q1

REPORT INFORMATION
  Report Type: Spontaneous
  Country: US (occurrence: US)
  Receive Date: 20220226
  Receipt Date: 20220226
  Transmission Date: 20220424
  Serious: Yes (Other)
  Sender: FDA-Public Use
  Company Number: US-NOVARTISPH-NVSC2022US045723

PATIENT
  Sex: Male

DRUGS (2)
  1. RANITIDINE [Suspect]
     Active Substance: RANITIDINE
     Indication: Dyspepsia
     Dosage: ,,150 MG,,,,,OTHER,2X A DAY DAILY
     Route: 048
     Dates: start: 201209, end: 201512
  2. RANITIDINE [Suspect]
     Active Substance: RANITIDINE
     Indication: Dyspepsia
     Dosage: ,,150 MG,,,,,OTHER,2X A DAY DAILY
     Route: 048
     Dates: start: 201209, end: 201512

REACTIONS (2)
  - Prostate cancer [Recovering/Resolving]
  - Incorrect dose administered [Unknown]
